FAERS Safety Report 4879061-1 (Version None)
Quarter: 2005Q4

REPORT INFORMATION
  Report Type: 
  Country: None (occurrence: None)
  Receive Date: 20051212
  Receipt Date: 20041104
  Transmission Date: 20060501
  Serious: Yes (Death, Hospitalization)
  Sender: FDA-Public Use
  Company Number: 140645USA

PATIENT
  Age: 85 Year
  Sex: Male

DRUGS (17)
  1. AMIODARONE HCL [Suspect]
     Dates: start: 20000101, end: 20000101
  2. GLUCOTROL [Concomitant]
  3. ASPIRIN [Concomitant]
  4. ALDACTONE [Concomitant]
  5. COUMADIN [Concomitant]
  6. LASIX [Concomitant]
  7. FLOVENT [Concomitant]
  8. ZAROXOLYN [Concomitant]
  9. FLONASE [Concomitant]
  10. SYNTHROID [Concomitant]
  11. KADIR [Concomitant]
  12. DOBUTAMINE [Concomitant]
  13. REGULAR INSULIN [Concomitant]
  14. ADENOSINE [Concomitant]
  15. CARDIZEM [Concomitant]
  16. ATROVENT [Concomitant]
  17. XOPENEX [Concomitant]

REACTIONS (3)
  - CARDIOPULMONARY FAILURE [None]
  - PULMONARY FIBROSIS [None]
  - RESPIRATORY FAILURE [None]
